FAERS Safety Report 8536493-8 (Version None)
Quarter: 2012Q3

REPORT INFORMATION
  Report Type: 
  Country: None (occurrence: None)
  Receive Date: 20120725
  Receipt Date: 20120720
  Transmission Date: 20120928
  Serious: Yes (Hospitalization)
  Sender: FDA-Public Use
  Company Number: PHFR2012GB003741

PATIENT
  Sex: Female
  Weight: 64 kg

DRUGS (5)
  1. ZOPICLONE [Concomitant]
     Indication: ANXIETY
     Dosage: 7.5 MG, QD
     Route: 048
  2. ILARIS [Suspect]
     Indication: CRYOPYRIN ASSOCIATED PERIODIC SYNDROME
     Dosage: 150 MG, EVERY 8 WEEKS
     Route: 058
     Dates: start: 20120215
  3. DIAZEPAM [Concomitant]
     Indication: ANXIETY
     Dosage: 2 MG, PRN
     Route: 048
  4. ILARIS [Suspect]
     Dosage: 150 MG, EVERY 8 WEEKS
     Route: 058
     Dates: start: 20070501
  5. SERTRALINE HYDROCHLORIDE [Concomitant]
     Indication: DEPRESSION
     Dosage: 150 MG, QD
     Route: 048
     Dates: start: 20110801

REACTIONS (1)
  - LOWER RESPIRATORY TRACT INFECTION VIRAL [None]
